FAERS Safety Report 19756056 (Version 1)
Quarter: 2021Q3

REPORT INFORMATION
  Report Type: Spontaneous
  Country: JP (occurrence: JP)
  Receive Date: 20210827
  Receipt Date: 20210827
  Transmission Date: 20211014
  Serious: Yes (Death)
  Sender: FDA-Public Use
  Company Number: JP-DSJP-DSJ-2021-127594

PATIENT
  Age: 53 Year
  Sex: Male

DRUGS (2)
  1. SUNITINIB [SUNITINIB MALATE] [Suspect]
     Active Substance: SUNITINIB MALEATE
     Indication: GASTROINTESTINAL STROMAL TUMOUR
     Dosage: 50MG/DAY
     Route: 065
  2. OLMETEC OD [Suspect]
     Active Substance: OLMESARTAN MEDOXOMIL
     Indication: BLOOD PRESSURE INCREASED
     Dosage: UNK
     Route: 048

REACTIONS (1)
  - Tumour lysis syndrome [Fatal]
